FAERS Safety Report 8429893-8 (Version None)
Quarter: 2012Q2

REPORT INFORMATION
  Report Type: 
  Country: None (occurrence: None)
  Receive Date: 20120612
  Receipt Date: 20120530
  Transmission Date: 20120825
  Serious: No
  Sender: FDA-Public Use
  Company Number: US-ASTRAZENECA-2012SE30664

PATIENT
  Age: 75 Year
  Sex: Male

DRUGS (12)
  1. SEROQUEL [Suspect]
     Route: 048
  2. SEROQUEL [Suspect]
     Route: 048
  3. SEROQUEL [Suspect]
     Indication: DELUSION
     Dosage: GENERIC
     Route: 048
  4. SEROQUEL [Suspect]
     Route: 048
  5. SEROQUEL [Suspect]
     Route: 048
  6. SEROQUEL [Suspect]
     Indication: DEPRESSION
     Dosage: GENERIC
     Route: 048
  7. RISPERDAL [Concomitant]
  8. SEROQUEL [Suspect]
     Route: 048
  9. SEROQUEL [Suspect]
     Route: 048
  10. ZOLOFT [Concomitant]
  11. SEROQUEL [Suspect]
     Route: 048
  12. SEROQUEL [Suspect]
     Route: 048

REACTIONS (7)
  - ADVERSE EVENT [None]
  - DELUSION [None]
  - OFF LABEL USE [None]
  - REGRESSIVE BEHAVIOUR [None]
  - HYPERHIDROSIS [None]
  - CHILLS [None]
  - DRUG INEFFECTIVE FOR UNAPPROVED INDICATION [None]
